FAERS Safety Report 7274320-X (Version None)
Quarter: 2011Q1

REPORT INFORMATION
  Report Type: 
  Country: None (occurrence: None)
  Receive Date: 20110131
  Receipt Date: 20110131
  Transmission Date: 20110831
  Serious: Yes (Other)
  Sender: FDA-Public Use
  Company Number: None

PATIENT
  Age: 24 Year
  Sex: Female
  Weight: 102.0593 kg

DRUGS (1)
  1. MIRENA [Suspect]

REACTIONS (7)
  - INFERTILITY [None]
  - WEIGHT INCREASED [None]
  - POLYCYSTIC OVARIES [None]
  - PAIN [None]
  - URINARY TRACT INFECTION [None]
  - ENDOMETRIOSIS [None]
  - VAGINITIS BACTERIAL [None]
